FAERS Safety Report 8863364 (Version 1)
Quarter: 2012Q4

REPORT INFORMATION
  Report Type: 
  Country: CN (occurrence: CN)
  Receive Date: 20121025
  Receipt Date: 20121025
  Transmission Date: 20130627
  Serious: Yes (Hospitalization)
  Sender: FDA-Public Use
  Company Number: CN-GLAXOSMITHKLINE-B0839975A

PATIENT
  Age: 54 Year
  Sex: Female
  Weight: 65 kg

DRUGS (1)
  1. AVANDIA [Suspect]
     Indication: TYPE 2 DIABETES MELLITUS
     Dosage: 4MG Twice per day
     Route: 048
     Dates: start: 20110702, end: 20110706

REACTIONS (3)
  - Anaphylactoid reaction [Recovering/Resolving]
  - Oedema [Recovered/Resolved]
  - Dyspnoea [Recovering/Resolving]
